FAERS Safety Report 22394550 (Version 1)
Quarter: 2023Q2

REPORT INFORMATION
  Report Type: Spontaneous
  Country: US (occurrence: None)
  Receive Date: 20230531
  Receipt Date: 20230531
  Transmission Date: 20230721
  Serious: Yes (Hospitalization)
  Sender: FDA-Public Use
  Company Number: None

PATIENT
  Age: 39 Year
  Sex: Female

DRUGS (1)
  1. KISQALI [Suspect]
     Active Substance: RIBOCICLIB
     Dosage: OTHER FREQUENCY : UNKNOWN;?
     Route: 048

REACTIONS (1)
  - Rhinovirus infection [None]

NARRATIVE: CASE EVENT DATE: 20230531
